FAERS Safety Report 19765931 (Version 1)
Quarter: 2021Q3

REPORT INFORMATION
  Report Type: Spontaneous
  Country: US (occurrence: US)
  Receive Date: 20210830
  Receipt Date: 20210830
  Transmission Date: 20211014
  Serious: No
  Sender: FDA-Public Use
  Company Number: US-ANIPHARMA-2021-US-000095

PATIENT
  Age: 77 Year
  Sex: Female
  Weight: 65.77 kg

DRUGS (1)
  1. ARIMIDEX [Suspect]
     Active Substance: ANASTROZOLE
     Indication: BREAST CANCER
     Route: 048
     Dates: start: 20200730, end: 20201230

REACTIONS (10)
  - Somnolence [Not Recovered/Not Resolved]
  - Myalgia [Not Recovered/Not Resolved]
  - Bone pain [Not Recovered/Not Resolved]
  - Condition aggravated [Not Recovered/Not Resolved]
  - Diarrhoea [Not Recovered/Not Resolved]
  - Hot flush [Recovered/Resolved]
  - Weight increased [Not Recovered/Not Resolved]
  - Constipation [Not Recovered/Not Resolved]
  - Arthralgia [Not Recovered/Not Resolved]
  - Lethargy [Not Recovered/Not Resolved]

NARRATIVE: CASE EVENT DATE: 20200730
